FAERS Safety Report 19388086 (Version 1)
Quarter: 2021Q2

REPORT INFORMATION
  Report Type: Report from Study
  Country: US (occurrence: US)
  Receive Date: 20210608
  Receipt Date: 20210608
  Transmission Date: 20210717
  Serious: No
  Sender: FDA-Public Use
  Company Number: NVSC2021US119289

PATIENT
  Sex: Male

DRUGS (1)
  1. PROMACTA [Suspect]
     Active Substance: ELTROMBOPAG OLAMINE
     Indication: PRODUCT USED FOR UNKNOWN INDICATION
     Dosage: 50 MG, QD
     Route: 048

REACTIONS (10)
  - Drug ineffective [Unknown]
  - Platelet count abnormal [Unknown]
  - Petechiae [Unknown]
  - Pharyngeal erythema [Unknown]
  - Tongue fungal infection [Unknown]
  - Oropharyngeal pain [Unknown]
  - Stomatitis [Unknown]
  - Fatigue [Unknown]
  - Cough [Unknown]
  - Pharyngeal inflammation [Unknown]
